FAERS Safety Report 5167762-X (Version None)
Quarter: 2006Q4

REPORT INFORMATION
  Report Type: 
  Country: None (occurrence: None)
  Receive Date: 20061204
  Receipt Date: 20061204
  Transmission Date: 20070319
  Serious: Yes (Hospitalization)
  Sender: FDA-Public Use
  Company Number: None

PATIENT
  Age: 65 Year
  Sex: Female

DRUGS (17)
  1. GEMCITABINE [Suspect]
     Indication: LUNG NEOPLASM MALIGNANT
     Dosage: 2070 MG
     Dates: start: 20061004, end: 20061004
  2. AVASTIN [Suspect]
     Indication: LUNG NEOPLASM MALIGNANT
     Dosage: 790 MG
     Dates: start: 20061113, end: 20061113
  3. TAGAMET [Concomitant]
  4. ADVAIR DISKUS 100/50 [Concomitant]
  5. PREMARIN [Concomitant]
  6. FOLIC ACID [Concomitant]
  7. AMBIEN [Concomitant]
  8. KYTRIL [Concomitant]
  9. DECADRON [Concomitant]
  10. XANAX [Concomitant]
  11. VICODIN ES [Concomitant]
  12. ACYCLOVIR [Concomitant]
  13. ARTIFICIAL TEAR DROPS [Concomitant]
  14. ERYTHROMYCIN EYE CREAM [Concomitant]
  15. SENNA [Concomitant]
  16. COLACE [Concomitant]
  17. PREMARIN [Concomitant]

REACTIONS (13)
  - BODY TEMPERATURE DECREASED [None]
  - CONSTIPATION [None]
  - FATIGUE [None]
  - FEBRILE NEUTROPENIA [None]
  - HAEMOGLOBIN DECREASED [None]
  - HERPES VIRUS INFECTION [None]
  - HERPES ZOSTER [None]
  - KERATITIS INTERSTITIAL [None]
  - MALAISE [None]
  - PAIN [None]
  - PLATELET COUNT DECREASED [None]
  - URINARY TRACT INFECTION [None]
  - WHITE BLOOD CELL COUNT DECREASED [None]
